FAERS Safety Report 5618678-3 (Version None)
Quarter: 2008Q1

REPORT INFORMATION
  Report Type: 
  Country: None (occurrence: None)
  Receive Date: 20080207
  Receipt Date: 20080129
  Transmission Date: 20080703
  Serious: Yes (Other)
  Sender: FDA-Public Use
  Company Number: US-JNJFOC-20080100074

PATIENT
  Sex: Female
  Weight: 102.06 kg

DRUGS (5)
  1. TOPAMAX [Suspect]
     Indication: NEUROPATHY PERIPHERAL
     Route: 048
  2. CHLORTHALIDONE [Concomitant]
     Indication: HYPERTENSION
     Route: 048
  3. QUESTRAN [Concomitant]
     Indication: DIARRHOEA
  4. MACROBID [Concomitant]
     Indication: CYSTITIS
     Route: 048
  5. AVAPRO [Concomitant]
     Indication: VENTRICULAR EXTRASYSTOLES
     Route: 048

REACTIONS (2)
  - BLINDNESS UNILATERAL [None]
  - MYOPIA [None]
